FAERS Safety Report 10444583 (Version 1)
Quarter: 2014Q3

REPORT INFORMATION
  Report Type: Spontaneous
  Country: US (occurrence: None)
  Receive Date: 20140909
  Receipt Date: 20140909
  Transmission Date: 20150326
  Serious: No
  Sender: FDA-Public Use
  Company Number: None

PATIENT
  Age: 66 Year
  Weight: 77.11 kg

DRUGS (1)
  1. MIRVASO [Suspect]
     Active Substance: BRIMONIDINE TARTRATE
     Indication: ROSACEA
     Dosage: APPLY EVERY DAY ONCE DAILY APPLIED TO A SURFACE, USUALLY THE SKIN, ALMOST 3 WEEKS

REACTIONS (2)
  - Flushing [None]
  - Skin warm [None]

NARRATIVE: CASE EVENT DATE: 20140908
